FAERS Safety Report 8015509-1 (Version None)
Quarter: 2011Q4

REPORT INFORMATION
  Report Type: 
  Country: None (occurrence: None)
  Receive Date: 20111227
  Receipt Date: 20111227
  Transmission Date: 20120403
  Serious: No
  Sender: FDA-Public Use
  Company Number: None

PATIENT
  Age: 75 Year
  Sex: Male
  Weight: 74.8435 kg

DRUGS (6)
  1. FEXOFENADINE [Concomitant]
  2. FLUTICASONE FUROATE [Concomitant]
  3. SIMVASTATIN [Concomitant]
  4. TIMOLOL MALEATE [Concomitant]
  5. LOSARTAN POTASSIUM [Concomitant]
  6. JANUMET [Suspect]
     Indication: TYPE 2 DIABETES MELLITUS
     Dosage: 1 TAB BID PO  (~10/10 - 8/11)
     Route: 048

REACTIONS (7)
  - DIZZINESS [None]
  - PRURITUS [None]
  - ABDOMINAL DISCOMFORT [None]
  - ANXIETY [None]
  - FATIGUE [None]
  - INCREASED UPPER AIRWAY SECRETION [None]
  - SKIN DISORDER [None]
